FAERS Safety Report 9414819 (Version 2)
Quarter: 2013Q4

REPORT INFORMATION
  Report Type: Spontaneous
  Country: GB (occurrence: GB)
  Receive Date: 20130723
  Receipt Date: 20131106
  Transmission Date: 20140711
  Serious: Yes (Other)
  Sender: FDA-Public Use
  Company Number: GB-WATSON-2013-12611

PATIENT
  Age: 90 Year
  Sex: Female

DRUGS (6)
  1. CO-AMOXICLAV [Suspect]
     Indication: NOSOCOMIAL INFECTION
     Dosage: 1000MG/200MG.   STAT DOSE ONLY RECEIVED
     Route: 041
     Dates: start: 20110504, end: 20110504
  2. CIPROFLOXACIN HYDROCHLORIDE (UNKNOWN) [Suspect]
     Indication: NOSOCOMIAL INFECTION
     Dosage: 500 MG, BID; 4 DOSES RECEIVED
     Route: 048
     Dates: start: 20110512, end: 20110513
  3. CIPROFLOXACIN HYDROCHLORIDE (UNKNOWN) [Suspect]
     Dosage: 400 MG, BID; 400MG/200 ML. 4 DOSES BEFORE BEING SWITCHED BACK TO ORAL CIPROFLOXACIN
     Route: 041
     Dates: start: 20110509, end: 20110511
  4. CIPROFLOXACIN HYDROCHLORIDE (UNKNOWN) [Suspect]
     Dosage: 500 MG, TID; RECEIVED 7 DOSES THEN SWITCHED TO INTRAVENOUS
     Route: 048
     Dates: start: 20110505, end: 20110508
  5. OMEPRAZOLE [Concomitant]
     Indication: PRODUCT USED FOR UNKNOWN INDICATION
     Dosage: 20 MG, DAILY; ONGOING THERAPY. BEFORE AND THROUGHOUT ADMISSION
     Route: 065
  6. OMEPRAZOLE [Concomitant]
     Dosage: ONGOING THERAPY. BEFORE AND THROUGHOUT ADMISSION

REACTIONS (6)
  - Clostridium difficile colitis [Recovering/Resolving]
  - Gastroenteritis norovirus [Unknown]
  - Vomiting [Recovering/Resolving]
  - Pyrexia [Recovering/Resolving]
  - Abdominal distension [Recovering/Resolving]
  - Malaise [Recovering/Resolving]
